FAERS Safety Report 5647719-2 (Version None)
Quarter: 2008Q1

REPORT INFORMATION
  Report Type: 
  Country: None (occurrence: None)
  Receive Date: 20080303
  Receipt Date: 20080220
  Transmission Date: 20080703
  Serious: Yes (Hospitalization)
  Sender: FDA-Public Use
  Company Number: PFIZER INC-2008015270

PATIENT
  Age: 53 Year
  Sex: Male
  Weight: 104 kg

DRUGS (1)
  1. SUTENT [Suspect]
     Indication: MULTIPLE MYELOMA
     Dosage: DAILY DOSE:37.5MG-FREQ:DAILY
     Route: 048
     Dates: start: 20071219, end: 20080123

REACTIONS (8)
  - BLOOD CREATININE [None]
  - GRANULOCYTE COUNT [None]
  - HAEMOGLOBIN [None]
  - HYPOXIA [None]
  - NEUTROPHIL COUNT [None]
  - PLATELET COUNT [None]
  - RENAL FAILURE [None]
  - WHITE BLOOD CELL COUNT [None]
